FAERS Safety Report 7059642-X (Version None)
Quarter: 2010Q4

REPORT INFORMATION
  Report Type: 
  Country: None (occurrence: None)
  Receive Date: 20101025
  Receipt Date: 20101012
  Transmission Date: 20110411
  Serious: No
  Sender: FDA-Public Use
  Company Number: CA-ELI_LILLY_AND_COMPANY-CA201010002525

PATIENT
  Sex: Male

DRUGS (23)
  1. ZYPREXA [Suspect]
     Indication: SCHIZOPHRENIA
     Dosage: 10 MG, 2/D
     Dates: start: 20050110
  2. ZYPREXA [Suspect]
     Dosage: 30 MG, 10 MG IN MORNING AND 20 MG IN EVENING
  3. ZYPREXA [Suspect]
     Dosage: 25 MG, 5 MG EACH MORNING AND 20 MG EACH EVENING
  4. ZYPREXA [Suspect]
     Dosage: 20 MG, EACH EVENING
  5. ZYPREXA [Suspect]
     Dosage: 5 MG, AS NEEDED
  6. ZYPREXA [Suspect]
     Dosage: 5 MG, 2/D
  7. ZYPREXA ZYDIS [Suspect]
     Dosage: UNK, EACH EVENING
  8. ZYPREXA ZYDIS [Suspect]
     Dosage: 15 MG, EACH EVENING
  9. METFORMIN HYDROCHLORIDE [Concomitant]
     Dosage: 500 MG, 2/D
  10. UREMOL [Concomitant]
     Dosage: UNK, DAILY (1/D)
  11. ALTACE [Concomitant]
     Dosage: 2.5 MG, DAILY (1/D)
  12. LORAZEPAM [Concomitant]
  13. INVEGA [Concomitant]
     Dosage: 6 MG, EACH MORNING
     Route: 048
  14. INVEGA [Concomitant]
     Dosage: 9 MG, EACH MORNING
     Route: 048
  15. LIPITOR [Concomitant]
     Dosage: 40 MG, EACH EVENING
  16. SEROQUEL [Concomitant]
     Dosage: 50 MG, TWICE DAILY, ORALLY
     Route: 048
  17. RISPERIDONE [Concomitant]
     Dosage: 4 MG, EACH EVENING
  18. RISPERIDONE [Concomitant]
     Dosage: 3 MG, EACH EVENING
     Dates: start: 20050404
  19. RISPERIDONE [Concomitant]
     Dosage: 2 MG, EACH EVENING
     Dates: start: 20050418
  20. CELEXA [Concomitant]
     Dosage: 30 MG, UNK
  21. CELEXA [Concomitant]
     Dosage: 50 MG, EACH MORNING
  22. AMITRIPTYLINE HCL [Concomitant]
     Dosage: 5 MG, 3/D
     Dates: start: 20050916
  23. LITHIUM CARBONATE [Concomitant]
     Dosage: 300 MG, 3/D
     Route: 048

REACTIONS (9)
  - BLOOD CHOLESTEROL INCREASED [None]
  - BLOOD GLUCOSE INCREASED [None]
  - BLOOD TRIGLYCERIDES INCREASED [None]
  - DIABETES MELLITUS [None]
  - GLUCOSE TOLERANCE IMPAIRED [None]
  - LOW DENSITY LIPOPROTEIN INCREASED [None]
  - OBESITY [None]
  - OVERDOSE [None]
  - WHITE BLOOD CELL COUNT INCREASED [None]
